FAERS Safety Report 6532267-8 (Version None)
Quarter: 2010Q1

REPORT INFORMATION
  Report Type: 
  Country: None (occurrence: None)
  Receive Date: 20100108
  Receipt Date: 20100104
  Transmission Date: 20100710
  Serious: Yes (Death, Life-Threatening)
  Sender: FDA-Public Use
  Company Number: DE-GENENTECH-231147

PATIENT
  Sex: Male
  Weight: 79 kg

DRUGS (3)
  1. RITUXIMAB [Suspect]
     Indication: NON-HODGKIN'S LYMPHOMA
     Dosage: 700 MG, Q4W
     Route: 042
     Dates: start: 20041011, end: 20050302
  2. RITUXIMAB [Suspect]
     Dosage: UNK
     Dates: end: 20050720
  3. BENDAMUSTINE [Suspect]
     Indication: NON-HODGKIN'S LYMPHOMA
     Dosage: D2,D3,D28
     Route: 042
     Dates: start: 20041012, end: 20050302

REACTIONS (1)
  - MYCOSIS FUNGOIDES [None]
